FAERS Safety Report 6515533-1 (Version None)
Quarter: 2009Q4

REPORT INFORMATION
  Report Type: 
  Country: None (occurrence: None)
  Receive Date: 20091223
  Receipt Date: 20091218
  Transmission Date: 20100525
  Serious: Yes (Other)
  Sender: FDA-Public Use
  Company Number: US-PERRIGO-09US005847

PATIENT
  Age: 18 Month
  Sex: Male
  Weight: 11.338 kg

DRUGS (1)
  1. NITETIME FREE ORIG 6HR LIQ 908 [Suspect]
     Indication: ACCIDENTAL DRUG INTAKE BY CHILD
     Dosage: 5 OUNCES, SINGLE
     Route: 048
     Dates: start: 20091218, end: 20091218

REACTIONS (2)
  - ACCIDENTAL OVERDOSE [None]
  - NO ADVERSE EVENT [None]
